FAERS Safety Report 9802193 (Version 32)
Quarter: 2024Q4

REPORT INFORMATION
  Report Type: Spontaneous
  Country: GB (occurrence: GB)
  Receive Date: 20140107
  Receipt Date: 20241127
  Transmission Date: 20250114
  Serious: Yes (Life-Threatening, Hospitalization, Disabling, Congenital Anomaly, Other)
  Sender: ABBVIE
  Company Number: GB-ABBOTT-09P-167-0601148-00

PATIENT
  Sex: Female
  Weight: 2 kg

DRUGS (25)
  1. NORVIR [Suspect]
     Active Substance: RITONAVIR
     Indication: Maternal exposure timing unspecified
     Route: 064
  2. NORVIR [Suspect]
     Active Substance: RITONAVIR
     Indication: Maternal exposure timing unspecified
     Route: 064
  3. NORVIR [Suspect]
     Active Substance: RITONAVIR
     Indication: Maternal exposure timing unspecified
     Route: 064
  4. PREZISTA [Suspect]
     Active Substance: DARUNAVIR ETHANOLATE
     Indication: Maternal exposure timing unspecified
     Route: 064
  5. PREZISTA [Suspect]
     Active Substance: DARUNAVIR ETHANOLATE
     Indication: Maternal exposure timing unspecified
     Route: 064
  6. RALTEGRAVIR [Suspect]
     Active Substance: RALTEGRAVIR
     Indication: Maternal exposure timing unspecified
     Route: 064
  7. INTELENCE [Suspect]
     Active Substance: ETRAVIRINE
     Indication: Maternal exposure timing unspecified
     Route: 064
  8. INTELENCE [Suspect]
     Active Substance: ETRAVIRINE
     Indication: Maternal exposure timing unspecified
     Route: 064
  9. APTIVUS [Suspect]
     Active Substance: TIPRANAVIR
     Indication: Maternal exposure timing unspecified
     Route: 064
  10. APTIVUS [Suspect]
     Active Substance: TIPRANAVIR
     Indication: Maternal exposure timing unspecified
     Route: 064
  11. ISENTRESS [Suspect]
     Active Substance: RALTEGRAVIR POTASSIUM
     Indication: Maternal exposure timing unspecified
     Route: 064
  12. ISENTRESS [Suspect]
     Active Substance: RALTEGRAVIR POTASSIUM
     Indication: Maternal exposure timing unspecified
     Route: 064
  13. ISENTRESS [Suspect]
     Active Substance: RALTEGRAVIR POTASSIUM
     Indication: Maternal exposure timing unspecified
     Route: 064
  14. ETRAVIRINE [Suspect]
     Active Substance: ETRAVIRINE
     Indication: Maternal exposure timing unspecified
     Route: 064
  15. TRUVADA [Suspect]
     Active Substance: EMTRICITABINE\TENOFOVIR DISOPROXIL FUMARATE
     Indication: Maternal exposure timing unspecified
     Route: 064
  16. TRUVADA [Suspect]
     Active Substance: EMTRICITABINE\TENOFOVIR DISOPROXIL FUMARATE
     Indication: Maternal exposure timing unspecified
     Route: 064
  17. OXYGEN [Concomitant]
     Active Substance: OXYGEN
     Indication: Maternal exposure timing unspecified
     Route: 064
  18. PREDNISOLONE [Concomitant]
     Active Substance: PREDNISOLONE
     Indication: Maternal exposure timing unspecified
     Route: 064
  19. ZIDOVUDINE [Concomitant]
     Active Substance: ZIDOVUDINE
     Indication: Maternal exposure timing unspecified
     Route: 064
  20. NITROUS OXIDE [Concomitant]
     Active Substance: NITROUS OXIDE
     Indication: Maternal exposure timing unspecified
     Route: 064
  21. NOVORAPID [Concomitant]
     Active Substance: INSULIN ASPART
     Indication: Maternal exposure timing unspecified
     Route: 064
  22. NOVORAPID [Concomitant]
     Active Substance: INSULIN ASPART
     Indication: Maternal exposure timing unspecified
     Route: 064
  23. ENFUVIRTIDE [Concomitant]
     Active Substance: ENFUVIRTIDE
     Indication: Maternal exposure timing unspecified
     Route: 064
  24. DARUNAVIR [Concomitant]
     Active Substance: DARUNAVIR
     Indication: Maternal exposure timing unspecified
  25. INSULIN NOS [Concomitant]
     Active Substance: INSULIN NOS
     Indication: Maternal exposure timing unspecified

REACTIONS (44)
  - Exomphalos [Recovered/Resolved]
  - Bladder agenesis [Recovered/Resolved with Sequelae]
  - Anal atresia [Recovered/Resolved with Sequelae]
  - Exomphalos [Recovered/Resolved with Sequelae]
  - Meningomyelocele [Recovered/Resolved with Sequelae]
  - Caudal regression syndrome [Not Recovered/Not Resolved]
  - Lipodystrophy acquired [Unknown]
  - Cloacal exstrophy [Recovered/Resolved with Sequelae]
  - Umbilical cord abnormality [Recovered/Resolved with Sequelae]
  - Musculoskeletal deformity [Recovered/Resolved with Sequelae]
  - Caudal regression syndrome [Recovered/Resolved with Sequelae]
  - Tethered cord syndrome [Recovered/Resolved with Sequelae]
  - Anal atresia [Recovered/Resolved with Sequelae]
  - Meconium stain [Recovered/Resolved with Sequelae]
  - Genitalia external ambiguous [Recovered/Resolved with Sequelae]
  - Congenital spinal cord anomaly [Not Recovered/Not Resolved]
  - Blood iron decreased [Recovered/Resolved]
  - Erythema [Recovered/Resolved]
  - Spina bifida [Unknown]
  - Anencephaly [Unknown]
  - Musculoskeletal pain [Unknown]
  - Sepsis [Recovered/Resolved]
  - Low birth weight baby [Unknown]
  - Pain in extremity [Recovered/Resolved]
  - Erythema [Unknown]
  - Selective eating disorder [Unknown]
  - Premature baby [Recovered/Resolved]
  - Congenital musculoskeletal disorder [Recovered/Resolved]
  - Foetal exposure during pregnancy [Unknown]
  - Blood iron decreased [Recovered/Resolved]
  - Congenital ectopic bladder [Unknown]
  - Lipodystrophy acquired [Not Recovered/Not Resolved]
  - Meningomyelocele [Recovered/Resolved with Sequelae]
  - Neural tube defect [Unknown]
  - Connective tissue disorder [Unknown]
  - Gastrointestinal malformation [Unknown]
  - Congenital anomaly [Unknown]
  - Congenital ectopic bladder [Recovered/Resolved]
  - Gastrointestinal disorder congenital [Unknown]
  - Sepsis neonatal [Recovered/Resolved]
  - Omphalorrhexis [Unknown]
  - Congenital musculoskeletal disorder of spine [Unknown]
  - Congenital genital malformation [Recovered/Resolved with Sequelae]
  - Musculoskeletal discomfort [Recovered/Resolved with Sequelae]

NARRATIVE: CASE EVENT DATE: 20080614
